FAERS Safety Report 15645368 (Version 4)
Quarter: 2021Q1

REPORT INFORMATION
  Report Type: Spontaneous
  Country: US (occurrence: US)
  Receive Date: 20181121
  Receipt Date: 20210322
  Transmission Date: 20210419
  Serious: Yes (Other)
  Sender: FDA-Public Use
  Company Number: US-SHIRE-US201844726

PATIENT
  Age: 44 Year
  Sex: Female

DRUGS (12)
  1. GATTEX [Suspect]
     Active Substance: TEDUGLUTIDE\WATER
     Dosage: 0.315 UNK, UNK QD
     Route: 058
     Dates: start: 20180308
  2. GATTEX [Suspect]
     Active Substance: TEDUGLUTIDE\WATER
     Dosage: 0.17 UNK
     Route: 058
     Dates: start: 20180308
  3. GATTEX [Suspect]
     Active Substance: TEDUGLUTIDE\WATER
     Indication: SHORT-BOWEL SYNDROME
     Dosage: 0.17 UNK
     Route: 065
     Dates: start: 20180308
  4. GATTEX [Suspect]
     Active Substance: TEDUGLUTIDE\WATER
     Dosage: 0.17 UNK
     Route: 058
     Dates: start: 20180308
  5. GATTEX [Suspect]
     Active Substance: TEDUGLUTIDE\WATER
     Dosage: 0.315 UNK, UNK QD
     Route: 058
     Dates: start: 20180308
  6. GATTEX [Suspect]
     Active Substance: TEDUGLUTIDE\WATER
     Indication: SHORT-BOWEL SYNDROME
     Dosage: 0.17 UNK
     Route: 065
     Dates: start: 20180308
  7. GATTEX [Suspect]
     Active Substance: TEDUGLUTIDE\WATER
     Dosage: 0.17 UNK
     Route: 058
     Dates: start: 20180308
  8. GATTEX [Suspect]
     Active Substance: TEDUGLUTIDE\WATER
     Dosage: 0.315 UNK, UNK QD
     Route: 058
     Dates: start: 20180308
  9. GATTEX [Suspect]
     Active Substance: TEDUGLUTIDE\WATER
     Indication: SHORT-BOWEL SYNDROME
     Dosage: 0.17 UNK
     Route: 065
     Dates: start: 20180308
  10. GATTEX [Suspect]
     Active Substance: TEDUGLUTIDE\WATER
     Indication: SHORT-BOWEL SYNDROME
     Dosage: 0.17 UNK
     Route: 065
     Dates: start: 20180308
  11. GATTEX [Suspect]
     Active Substance: TEDUGLUTIDE\WATER
     Dosage: 0.17 UNK
     Route: 058
     Dates: start: 20180308
  12. GATTEX [Suspect]
     Active Substance: TEDUGLUTIDE\WATER
     Dosage: 0.315 UNK, UNK QD
     Route: 058
     Dates: start: 20180308

REACTIONS (8)
  - Pyrexia [Unknown]
  - Hernia [Unknown]
  - Weight decreased [Unknown]
  - Abdominal pain upper [Unknown]
  - Stoma site oedema [Unknown]
  - Chills [Unknown]
  - Crohn^s disease [Not Recovered/Not Resolved]
  - Diarrhoea [Unknown]

NARRATIVE: CASE EVENT DATE: 20210311
